FAERS Safety Report 5390530-0 (Version None)
Quarter: 2007Q3

REPORT INFORMATION
  Report Type: 
  Country: None (occurrence: None)
  Receive Date: 20070718
  Receipt Date: 20060605
  Transmission Date: 20080115
  Serious: No
  Sender: FDA-Public Use
  Company Number: US-KINGPHARMUSA00001-K200600742

PATIENT

DRUGS (5)
  1. LEVOXYL [Suspect]
     Indication: HYPOTHYROIDISM
     Dosage: 50 MCG, QD
     Route: 048
     Dates: start: 20050101, end: 20050501
  2. LEVOXYL [Suspect]
     Dosage: 25 MCG, QD
     Route: 048
     Dates: start: 20050501, end: 20060501
  3. EFFEXOR [Concomitant]
     Indication: BIPOLAR I DISORDER
     Dosage: 150 MG, QD
     Route: 048
     Dates: start: 20010101, end: 20050101
  4. DEPAKOTE [Concomitant]
     Indication: BIPOLAR I DISORDER
     Dosage: 1500 MG, TID
     Route: 048
     Dates: start: 20010101, end: 20050101
  5. OXYCONTIN [Concomitant]
     Indication: BONE PAIN
     Dosage: 40 MG, TID
     Route: 048
     Dates: start: 19910101, end: 20050101

REACTIONS (2)
  - ANOREXIA [None]
  - WEIGHT DECREASED [None]
